FAERS Safety Report 6795239-4 (Version None)
Quarter: 2010Q2

REPORT INFORMATION
  Report Type: 
  Country: None (occurrence: None)
  Receive Date: 20100625
  Receipt Date: 20100622
  Transmission Date: 20101027
  Serious: Yes (Life-Threatening, Hospitalization)
  Sender: FDA-Public Use
  Company Number: US-EISAI INC.-E7272-00065-CLI-US

PATIENT
  Sex: Female
  Weight: 60 kg

DRUGS (25)
  1. ONTAK [Suspect]
     Indication: T-CELL LYMPHOMA
     Route: 041
     Dates: start: 20100530, end: 20100603
  2. ACYCLOVIR [Concomitant]
     Route: 048
  3. DEXTROSE 5% [Concomitant]
     Route: 042
  4. DOCUSATE [Concomitant]
     Route: 048
  5. ENTECAVIR [Concomitant]
     Route: 048
  6. FILGRASTIM [Concomitant]
     Route: 058
  7. HEPARIN [Concomitant]
     Route: 042
  8. HEPARIN [Concomitant]
     Route: 042
  9. LANSOPRAZOLE [Concomitant]
     Route: 048
  10. MEROPENEM [Concomitant]
     Route: 042
  11. NORMAL SALINE [Concomitant]
     Route: 042
  12. SEVELAMER [Concomitant]
     Route: 048
  13. VANCOMYCIN [Concomitant]
     Route: 042
  14. VORICONAZOLE [Concomitant]
     Route: 048
  15. ALBUTEROL [Concomitant]
  16. CETRIZINE [Concomitant]
     Route: 048
  17. ACETAMINOPHEN AND HYDROCODONE BITARTRATE [Concomitant]
     Dosage: 1-2 TABS
     Route: 048
  18. DILAUDID [Concomitant]
     Route: 048
  19. DILAUDID [Concomitant]
     Dosage: 0.4-1MG
     Route: 042
  20. ATIVAN [Concomitant]
     Dosage: 0.51MG
     Route: 048
  21. ATIVAN [Concomitant]
     Dosage: 0.5-1MG
     Route: 042
  22. MAG HYDROX [Concomitant]
     Dosage: 15-30 ML
     Route: 048
  23. ZOFRAN [Concomitant]
     Route: 048
  24. ZOFRAN [Concomitant]
     Route: 042
  25. ZOLPIDEM [Concomitant]
     Route: 048

REACTIONS (4)
  - CARDIAC TAMPONADE [None]
  - PERICARDIAL EFFUSION [None]
  - PLEURAL EFFUSION [None]
  - PULMONARY OEDEMA [None]
